FAERS Safety Report 12744329 (Version 2)
Quarter: 2016Q3

REPORT INFORMATION
  Report Type: Spontaneous
  Country: DE (occurrence: DE)
  Receive Date: 20160914
  Receipt Date: 20160920
  Transmission Date: 20161109
  Serious: No
  Sender: FDA-Public Use
  Company Number: DE-UCBSA-2016035232

PATIENT
  Age: 46 Year
  Sex: Male

DRUGS (5)
  1. VIMPAT [Suspect]
     Active Substance: LACOSAMIDE
     Indication: EPILEPSY
     Dosage: 2 X 200 MG
  2. KEPPRA [Suspect]
     Active Substance: LEVETIRACETAM
     Dosage: UNK, DOWN TITRATION
     Dates: start: 201602, end: 201605
  3. VALPROIC ACID. [Concomitant]
     Active Substance: VALPROIC ACID
     Indication: EPILEPSY
     Dosage: 1 X 600 MG AND 1 X 750 MG
  4. BRIVIACT [Suspect]
     Active Substance: BRIVARACETAM
     Indication: EPILEPSY
     Dosage: 2 X 50 MG
  5. KEPPRA [Suspect]
     Active Substance: LEVETIRACETAM
     Indication: EPILEPSY
     Dosage: 2 X 1500 MG
     Dates: end: 201602

REACTIONS (2)
  - Seizure [Recovering/Resolving]
  - Agitation [Unknown]
